FAERS Safety Report 4863206-3 (Version None)
Quarter: 2005Q4

REPORT INFORMATION
  Report Type: 
  Country: None (occurrence: None)
  Receive Date: 20051201
  Receipt Date: 20050721
  Transmission Date: 20060501
  Serious: No
  Sender: FDA-Public Use
  Company Number: 2005PV000542

PATIENT
  Age: 54 Year
  Sex: Female
  Weight: 77.5651 kg

DRUGS (8)
  1. BYETTA [Suspect]
     Indication: DIABETES MELLITUS NON-INSULIN-DEPENDENT
     Dosage: 10 MCG; BID; SC; 5 MCG BID; SC
     Route: 058
     Dates: start: 20050718, end: 20050101
  2. METFORMIN [Concomitant]
  3. GLIPIZIDE [Concomitant]
  4. GEMFIBROZIL [Concomitant]
  5. ZETIA [Concomitant]
  6. FUROSEMIDE [Concomitant]
  7. HYZAAR [Concomitant]
  8. BENADRYL    WARNER-LAMBERT [Concomitant]

REACTIONS (3)
  - DECREASED APPETITE [None]
  - DRUG INEFFECTIVE [None]
  - WEIGHT INCREASED [None]
